FAERS Safety Report 9339531 (Version 1)
Quarter: 2013Q2

REPORT INFORMATION
  Report Type: Spontaneous
  Country: KR (occurrence: KR)
  Receive Date: 20130610
  Receipt Date: 20130610
  Transmission Date: 20140414
  Serious: Yes (Death, Hospitalization)
  Sender: FDA-Public Use
  Company Number: KR-BAYER-2013-068484

PATIENT
  Age: 58 Year
  Sex: Male

DRUGS (2)
  1. NEXAVAR [Suspect]
     Indication: HEPATIC CANCER METASTATIC
     Dosage: DAILY DOSE 800 MG
     Route: 048
     Dates: start: 20110922
  2. NEXAVAR [Suspect]
     Indication: METASTASES TO SPINE

REACTIONS (7)
  - General physical health deterioration [Fatal]
  - Hepatocellular carcinoma [None]
  - Neoplasm progression [None]
  - Metastases to spine [None]
  - Pulmonary mass [None]
  - Tumour thrombosis [None]
  - Pain [None]
